FAERS Safety Report 10996482 (Version 1)
Quarter: 2015Q2

REPORT INFORMATION
  Report Type: Spontaneous
  Country: US (occurrence: None)
  Receive Date: 20150407
  Receipt Date: 20150407
  Transmission Date: 20150821
  Serious: Yes (Death)
  Sender: FDA-Public Use
  Company Number: None

PATIENT
  Sex: Female

DRUGS (1)
  1. ADVAIR DISKUS [Suspect]
     Active Substance: FLUTICASONE PROPIONATE\SALMETEROL XINAFOATE
     Indication: ASTHMA
     Route: 055
     Dates: start: 20141205, end: 20141206

REACTIONS (4)
  - Cardiac arrest [None]
  - Wrong technique in drug usage process [None]
  - Self-medication [None]
  - Asthma [None]

NARRATIVE: CASE EVENT DATE: 20141206
